FAERS Safety Report 7693864-X (Version None)
Quarter: 2011Q3

REPORT INFORMATION
  Report Type: 
  Country: None (occurrence: None)
  Receive Date: 20110816
  Receipt Date: 20110804
  Transmission Date: 20111222
  Serious: Yes (Life-Threatening)
  Sender: FDA-Public Use
  Company Number: 1000022516

PATIENT
  Age: 44 Year
  Sex: Male

DRUGS (8)
  1. BIO-C-VITAMIN (ASCORBIC ACID (VIT C)) (ASCORBIC ACID (VIT C)) [Concomitant]
  2. HIPREX (METHENAMINE) (METHENAMINE) [Concomitant]
  3. IMOVANE (ZOPICLONE) (ZOPICLONE) [Concomitant]
  4. ESCITALOPRAM [Suspect]
     Indication: DEPRESSION
     Dosage: 5 MG (5 MG,1 IN 1 D),ORAL
     Route: 048
     Dates: start: 20110601, end: 20110601
  5. BACLOFEN [Concomitant]
  6. MAREVAN (WARFARIN) (WARFARIN) [Concomitant]
  7. ESCITALOPRAM [Suspect]
     Indication: DEPRESSION
     Dosage: 10 MG (10 MG,1 IN 1 D),ORAL
     Route: 048
     Dates: start: 20110601, end: 20110628
  8. ALOPAM (OXAZEPAM) (OXAZEPAM) [Concomitant]

REACTIONS (11)
  - HYPOREFLEXIA [None]
  - STUPOR [None]
  - HYPOVENTILATION [None]
  - AGGRESSION [None]
  - SUICIDE ATTEMPT [None]
  - MYDRIASIS [None]
  - MUSCLE RIGIDITY [None]
  - EYE MOVEMENT DISORDER [None]
  - TACHYCARDIA [None]
  - CONFUSIONAL STATE [None]
  - BLOOD CREATINE PHOSPHOKINASE INCREASED [None]
